FAERS Safety Report 7288885-5 (Version None)
Quarter: 2011Q1

REPORT INFORMATION
  Report Type: 
  Country: None (occurrence: None)
  Receive Date: 20110211
  Receipt Date: 20070726
  Transmission Date: 20110831
  Serious: Yes (Other)
  Sender: FDA-Public Use
  Company Number: PHHY2007CL03789

PATIENT
  Age: 77 Year
  Sex: Male

DRUGS (1)
  1. TAREG [Suspect]

REACTIONS (3)
  - PAIN [None]
  - PYREXIA [None]
  - BRONCHOPNEUMONIA [None]
